FAERS Safety Report 25688530 (Version 2)
Quarter: 2025Q4

REPORT INFORMATION
  Report Type: Spontaneous
  Country: US (occurrence: US)
  Receive Date: 20250818
  Receipt Date: 20251112
  Transmission Date: 20260117
  Serious: No
  Sender: ROCHE
  Company Number: US-ROCHE-10000361152

PATIENT
  Sex: Female

DRUGS (3)
  1. ITOVEBI [Suspect]
     Active Substance: INAVOLISIB
     Indication: Breast cancer metastatic
     Route: 048
  2. ITOVEBI [Suspect]
     Active Substance: INAVOLISIB
     Route: 048
  3. Paclociclib [Concomitant]
     Dosage: DOSE: 125 UNIT NOT REPORTED

REACTIONS (1)
  - Neutrophil count decreased [Not Recovered/Not Resolved]
